FAERS Safety Report 9780166 (Version 1)
Quarter: 2013Q4

REPORT INFORMATION
  Report Type: Report from Study
  Country: GB (occurrence: GB)
  Receive Date: 20131223
  Receipt Date: 20131223
  Transmission Date: 20140711
  Serious: Yes (Other)
  Sender: FDA-Public Use
  Company Number: PHHO2013GB016465

PATIENT
  Sex: 0

DRUGS (7)
  1. BKM120 [Suspect]
     Indication: GASTROINTESTINAL STROMAL TUMOUR
     Dosage: 80 MG, UNK
     Route: 048
     Dates: start: 20121231, end: 20131202
  2. STI571 [Suspect]
     Indication: GASTROINTESTINAL STROMAL TUMOUR
     Dosage: UNK
     Route: 048
     Dates: start: 20121231, end: 20131202
  3. LOPERAMIDE [Concomitant]
     Indication: DIARRHOEA
     Dosage: 2 MG, UNK
     Dates: start: 20071101
  4. CODEINE [Concomitant]
     Indication: DIARRHOEA
     Dosage: 30 MG, UNK
     Dates: start: 20071101
  5. SANDO K [Concomitant]
     Indication: HYPOKALAEMIA
     Dosage: 12 MMOL, UNK
     Dates: start: 20130813
  6. CLEAR MAGNESIUM [Concomitant]
     Indication: HYPOMAGNESAEMIA
     Dosage: 4 MMOL, UNK
     Dates: start: 20130813
  7. LANSOPRAZOLE [Concomitant]
     Indication: GASTROOESOPHAGEAL REFLUX DISEASE
     Dosage: 30 MG, UNK
     Dates: start: 20130916

REACTIONS (1)
  - Hypoglycaemia [Not Recovered/Not Resolved]
